FAERS Safety Report 4558586-2 (Version None)
Quarter: 2005Q1

REPORT INFORMATION
  Report Type: 
  Country: None (occurrence: None)
  Receive Date: 20050121
  Receipt Date: 20041210
  Transmission Date: 20050727
  Serious: Yes (Death, Hospitalization)
  Sender: FDA-Public Use
  Company Number: US-ROCHE-388906

PATIENT
  Age: 71 Year
  Sex: Female
  Weight: 90 kg

DRUGS (19)
  1. CAPECITABINE [Suspect]
     Indication: PANCREATIC CARCINOMA METASTATIC
     Route: 048
     Dates: start: 20040922, end: 20041116
  2. BEVACIZUMAB [Suspect]
     Indication: PANCREATIC CARCINOMA METASTATIC
     Dosage: REPORTED AS A POWDER AND SOLVENT INFUSION SOLUTION
     Route: 042
     Dates: start: 20040922, end: 20041110
  3. GEMCITABINE [Suspect]
     Indication: PANCREATIC CARCINOMA METASTATIC
     Route: 042
     Dates: start: 20040922, end: 20041110
  4. LOVENOX [Concomitant]
     Dates: start: 20040916
  5. COUMADIN [Concomitant]
     Dates: start: 20040916, end: 20041006
  6. PHYTONADIONE [Concomitant]
     Dosage: REPORTED AS VITAMIN K
     Dates: start: 20041006, end: 20041006
  7. PREVACID [Concomitant]
  8. PROCHLORPERAZINE [Concomitant]
  9. LANTUS [Concomitant]
  10. HUMALOG [Concomitant]
  11. XELODA [Concomitant]
  12. METFORMIN HCL [Concomitant]
  13. DIOVAN [Concomitant]
  14. METOPROLOL [Concomitant]
  15. LIPITOR [Concomitant]
  16. ROXANOL [Concomitant]
  17. FOSAMAX [Concomitant]
  18. VITAMIN E [Concomitant]
  19. AMLODIPINE [Concomitant]

REACTIONS (20)
  - ACTIVATED PARTIAL THROMBOPLASTIN TIME PROLONGED [None]
  - ASPIRATION [None]
  - BLOOD ALBUMIN DECREASED [None]
  - BLOOD ALKALINE PHOSPHATASE INCREASED [None]
  - BLOOD CALCIUM DECREASED [None]
  - BLOOD GLUCOSE INCREASED [None]
  - BLOOD SODIUM DECREASED [None]
  - DRUG INTERACTION [None]
  - DUODENAL ULCER HAEMORRHAGE [None]
  - HAEMATOCRIT DECREASED [None]
  - HAEMOGLOBIN DECREASED [None]
  - INTERNATIONAL NORMALISED RATIO INCREASED [None]
  - PLATELET COUNT INCREASED [None]
  - RED BLOOD CELL COUNT DECREASED [None]
  - SHOCK [None]
  - STOMATITIS [None]
  - SYNCOPE [None]
  - TACHYCARDIA [None]
  - VOMITING [None]
  - WHITE BLOOD CELL COUNT INCREASED [None]
